FAERS Safety Report 24569347 (Version 1)
Quarter: 2024Q4

REPORT INFORMATION
  Report Type: Spontaneous
  Country: IT (occurrence: IT)
  Receive Date: 20241031
  Receipt Date: 20241031
  Transmission Date: 20250114
  Serious: Yes (Other)
  Sender: PFIZER
  Company Number: None

PATIENT
  Age: 65 Year
  Sex: Female

DRUGS (4)
  1. MEDROL [Suspect]
     Active Substance: METHYLPREDNISOLONE
     Indication: Sciatica
     Dosage: 16 MG, DAILY
     Route: 048
     Dates: start: 20240925, end: 20240927
  2. MEDROL [Suspect]
     Active Substance: METHYLPREDNISOLONE
     Indication: Inflammation
  3. PALEXIA [Suspect]
     Active Substance: TAPENTADOL HYDROCHLORIDE
     Indication: Sciatica
     Dosage: 50 MG, 2X/DAY
     Route: 048
     Dates: start: 20240927, end: 20240927
  4. HYDROCHLOROTHIAZIDE\RAMIPRIL [Suspect]
     Active Substance: HYDROCHLOROTHIAZIDE\RAMIPRIL
     Indication: Hypertension
     Dosage: 1 DF, DAILY
     Route: 048
     Dates: start: 20240517, end: 20240927

REACTIONS (1)
  - Syncope [Recovered/Resolved]

NARRATIVE: CASE EVENT DATE: 20240927
